FAERS Safety Report 7276100-8 (Version None)
Quarter: 2011Q1

REPORT INFORMATION
  Report Type: 
  Country: None (occurrence: None)
  Receive Date: 20110204
  Receipt Date: 20110125
  Transmission Date: 20110831
  Serious: Yes (Hospitalization)
  Sender: FDA-Public Use
  Company Number: US-ASTRAZENECA-2010SE56399

PATIENT
  Age: 64 Year
  Sex: Female

DRUGS (7)
  1. MORPHINE-SUL [Concomitant]
  2. LORAZEPAM [Concomitant]
  3. FOSAMAX [Suspect]
     Route: 065
  4. CRESTOR [Suspect]
     Indication: HYPERCHOLESTEROLAEMIA
     Route: 048
  5. ACETAMINOPHEN AND HYDROCODONE BITARTRATE [Concomitant]
  6. ACTONEL [Suspect]
     Route: 065
  7. DOCUSATE SODIUM [Concomitant]

REACTIONS (5)
  - MUSCULAR WEAKNESS [None]
  - GAIT DISTURBANCE [None]
  - SURGERY [None]
  - ASTHENIA [None]
  - DYSSTASIA [None]
